FAERS Safety Report 6573270-1 (Version None)
Quarter: 2010Q1

REPORT INFORMATION
  Report Type: 
  Country: None (occurrence: None)
  Receive Date: 20100208
  Receipt Date: 20100126
  Transmission Date: 20100710
  Serious: Yes (Hospitalization)
  Sender: FDA-Public Use
  Company Number: FR-CELGENEUS-056-C5013-09121518

PATIENT
  Sex: Male
  Weight: 86 kg

DRUGS (16)
  1. THALIDOMIDE [Suspect]
     Indication: MULTIPLE MYELOMA
     Route: 048
     Dates: start: 20091029, end: 20091209
  2. THALIDOMIDE [Suspect]
     Route: 048
     Dates: start: 20090611
  3. MELPHALAN HYDROCHLORIDE [Suspect]
     Indication: MULTIPLE MYELOMA
     Route: 065
     Dates: start: 20091029, end: 20091101
  4. MELPHALAN HYDROCHLORIDE [Suspect]
     Route: 065
     Dates: start: 20090611
  5. PREDNISONE [Suspect]
     Indication: MULTIPLE MYELOMA
     Route: 065
     Dates: start: 20091029, end: 20091101
  6. PREDNISONE [Suspect]
     Route: 065
     Dates: start: 20090611
  7. COKENZEN [Concomitant]
     Indication: HYPERTENSION
     Route: 048
     Dates: start: 20050101, end: 20090626
  8. COKENZEN [Concomitant]
     Route: 048
     Dates: start: 20090627
  9. OMEPRAZOLE [Concomitant]
     Route: 048
     Dates: start: 20090611
  10. ASPIRIN [Concomitant]
     Indication: THROMBOSIS PROPHYLAXIS
     Route: 048
     Dates: start: 20090611
  11. METOCLOPRAMIDE [Concomitant]
     Route: 048
     Dates: start: 20090611
  12. LACTULOSE [Concomitant]
     Indication: CONSTIPATION
     Route: 048
  13. NEUPOGEN [Concomitant]
     Indication: NEUTROPENIA
     Route: 058
     Dates: start: 20090904, end: 20090906
  14. NEUPOGEN [Concomitant]
     Route: 058
     Dates: start: 20091023, end: 20091025
  15. NEUPOGEN [Concomitant]
     Route: 058
     Dates: start: 20091211, end: 20091215
  16. DIFFU K [Concomitant]
     Indication: VENTRICULAR EXTRASYSTOLES
     Route: 048
     Dates: start: 20091022

REACTIONS (1)
  - CATARACT [None]
